FAERS Safety Report 21656262 (Version 7)
Quarter: 2023Q1

REPORT INFORMATION
  Report Type: Spontaneous
  Country: BE (occurrence: BE)
  Receive Date: 20221129
  Receipt Date: 20230317
  Transmission Date: 20230418
  Serious: Yes (Hospitalization, Other)
  Sender: FDA-Public Use
  Company Number: BE-ALXN-A202214662

PATIENT
  Sex: Female
  Weight: 5.1 kg

DRUGS (8)
  1. STRENSIQ [Suspect]
     Active Substance: ASFOTASE ALFA
     Dosage: 11 MG, TIW
     Route: 058
     Dates: start: 20230118
  2. STRENSIQ [Suspect]
     Active Substance: ASFOTASE ALFA
     Dosage: 12 MG, TIW
     Route: 065
     Dates: start: 20230118
  3. STRENSIQ [Suspect]
     Active Substance: ASFOTASE ALFA
     Dosage: 2 MG, UNK
     Route: 065
  4. STRENSIQ [Suspect]
     Active Substance: ASFOTASE ALFA
     Indication: Hypophosphatasia
     Dosage: 9 MG, TIW
     Route: 058
     Dates: start: 20221109
  5. STRENSIQ [Suspect]
     Active Substance: ASFOTASE ALFA
     Dosage: 9 MG, TIW
     Route: 058
  6. AZITHROMYCIN [Concomitant]
     Active Substance: AZITHROMYCIN
     Indication: Antibiotic prophylaxis
     Dosage: 60 MG, TIW
     Route: 048
  7. OMEPRAZOLE [Concomitant]
     Active Substance: OMEPRAZOLE
     Indication: Regurgitation
     Dosage: 5 MG, QD
     Route: 048
  8. FLUTICASONE PROPIONATE\SALMETEROL XINAFOATE [Concomitant]
     Active Substance: FLUTICASONE PROPIONATE\SALMETEROL XINAFOATE
     Indication: Bronchial hyperreactivity
     Dosage: UNK, BID (ONE PUFF)
     Route: 045
     Dates: start: 20230213

REACTIONS (9)
  - Respiratory syncytial virus bronchiolitis [Recovered/Resolved]
  - Influenza [Not Recovered/Not Resolved]
  - Gastroenteritis [Recovered/Resolved]
  - Hypoglycaemia [Recovered/Resolved]
  - Bronchiolitis [Recovered/Resolved]
  - Rhinovirus infection [Unknown]
  - COVID-19 [Unknown]
  - SARS-CoV-2 test positive [Unknown]
  - Streptococcus test positive [Unknown]

NARRATIVE: CASE EVENT DATE: 20221122
